FAERS Safety Report 8953197 (Version 1)
Quarter: 2012Q4

REPORT INFORMATION
  Report Type: 
  Country: US (occurrence: US)
  Receive Date: 20121206
  Receipt Date: 20121206
  Transmission Date: 20130627
  Serious: Yes (Other)
  Sender: FDA-Public Use
  Company Number: US-ACCORD-015488

PATIENT
  Sex: Male

DRUGS (2)
  1. FLUOROURACIL [Concomitant]
     Indication: PANCREATIC CANCER
  2. GEMCITABINE [Suspect]
     Indication: PANCREATIC CANCER

REACTIONS (1)
  - Gouty arthritis [Recovered/Resolved]
